FAERS Safety Report 5312957-5 (Version None)
Quarter: 2007Q2

REPORT INFORMATION
  Report Type: 
  Country: None (occurrence: None)
  Receive Date: 20070430
  Receipt Date: 20070420
  Transmission Date: 20071010
  Serious: No
  Sender: FDA-Public Use
  Company Number: US-PFIZER INC-2006130845

PATIENT
  Sex: Female

DRUGS (3)
  1. CELECOXIB [Suspect]
     Route: 048
  2. BEXTRA [Suspect]
     Route: 048
  3. VIOXX [Suspect]
     Route: 048

REACTIONS (1)
  - NO ADVERSE EFFECT [None]
